FAERS Safety Report 6851199-9 (Version None)
Quarter: 2010Q3

REPORT INFORMATION
  Report Type: 
  Country: None (occurrence: None)
  Receive Date: 20100716
  Receipt Date: 20100707
  Transmission Date: 20110219
  Serious: Yes (Other)
  Sender: FDA-Public Use
  Company Number: US-AMGEN-KDL422711

PATIENT
  Sex: Male

DRUGS (2)
  1. ENBREL [Suspect]
     Indication: PSORIATIC ARTHROPATHY
     Route: 058
     Dates: start: 20010401
  2. METHOTREXATE [Concomitant]

REACTIONS (4)
  - DEPRESSION [None]
  - MIGRAINE [None]
  - NASOPHARYNGITIS [None]
  - PSORIASIS [None]
